FAERS Safety Report 7086507-X (Version None)
Quarter: 2010Q4

REPORT INFORMATION
  Report Type: 
  Country: None (occurrence: None)
  Receive Date: 20101105
  Receipt Date: 20101027
  Transmission Date: 20110411
  Serious: Yes (Other)
  Sender: FDA-Public Use
  Company Number: FR-JNJFOC-20100906105

PATIENT
  Age: 26 Year
  Sex: Female
  Weight: 53 kg

DRUGS (5)
  1. REMICADE [Suspect]
     Indication: CROHN'S DISEASE
     Route: 042
  2. REMICADE [Suspect]
     Route: 042
  3. ORAL CONTRACEPTION [Concomitant]
     Route: 048
  4. HYDROCORTISONE [Concomitant]
     Indication: PREMEDICATION
  5. POLARAMINE [Concomitant]
     Indication: PREMEDICATION
     Dosage: DOSE: 1 AMPOULE

REACTIONS (8)
  - CHEST DISCOMFORT [None]
  - CROHN'S DISEASE [None]
  - ERYTHEMA [None]
  - HYPERTENSION [None]
  - INFUSION RELATED REACTION [None]
  - NAUSEA [None]
  - URTICARIA [None]
  - VOMITING [None]
